FAERS Safety Report 17957436 (Version 1)
Quarter: 2020Q2

REPORT INFORMATION
  Report Type: Spontaneous
  Country: CH (occurrence: CH)
  Receive Date: 20200629
  Receipt Date: 20200629
  Transmission Date: 20200714
  Serious: Yes (Life-Threatening, Hospitalization, Other)
  Sender: FDA-Public Use
  Company Number: CH-PFIZER INC-2020246555

PATIENT
  Age: 48 Year
  Sex: Female

DRUGS (18)
  1. PERENTEROL [Concomitant]
     Active Substance: SACCHAROMYCES CEREVISIAE
     Dosage: UNK
  2. BISOLVON [Concomitant]
     Active Substance: BROMHEXINE HYDROCHLORIDE
     Dosage: UNK
  3. RITALINE [Suspect]
     Active Substance: METHYLPHENIDATE HYDROCHLORIDE
     Dosage: 10 MG
  4. AUGMENTIN [Suspect]
     Active Substance: AMOXICILLIN\CLAVULANATE POTASSIUM
     Dosage: 1 G
  5. VITAMIN B6 [Concomitant]
     Active Substance: PYRIDOXINE HYDROCHLORIDE
     Dosage: UNK
  6. NEXIUM [Suspect]
     Active Substance: ESOMEPRAZOLE MAGNESIUM
     Dosage: 20 MG
  7. SERESTA [Suspect]
     Active Substance: OXAZEPAM
     Dosage: 15 MG
  8. TEMESTA (LORAZEPAM) [Suspect]
     Active Substance: LORAZEPAM
     Dosage: 1 MG
  9. BRUFEN [Suspect]
     Active Substance: IBUPROFEN
     Dosage: 400 MG
  10. DE-URSIL [Concomitant]
     Dosage: UNK
  11. BECOZYME [VITAMIN B COMPLEX] [Concomitant]
     Active Substance: VITAMINS
     Dosage: UNK
  12. TRITTICO [Suspect]
     Active Substance: TRAZODONE HYDROCHLORIDE
     Dosage: 50 MG
  13. BENERVA [Concomitant]
     Active Substance: THIAMINE HYDROCHLORIDE
     Dosage: UNK
  14. PREGABALIN. [Suspect]
     Active Substance: PREGABALIN
     Dosage: 100 MG
  15. DAFALGAN [Suspect]
     Active Substance: ACETAMINOPHEN
     Dosage: 1G(BOX OF 16 TBS EMPTY)
     Route: 048
  16. PROZAC [Suspect]
     Active Substance: FLUOXETINE HYDROCHLORIDE
     Dosage: 20 MG
  17. TRAMAL [Suspect]
     Active Substance: TRAMADOL
     Dosage: 100 MG
  18. MYCOSTATIN [Concomitant]
     Active Substance: NYSTATIN
     Dosage: UNK

REACTIONS (3)
  - Rhabdomyolysis [Unknown]
  - Acute kidney injury [Recovered/Resolved with Sequelae]
  - Suicide attempt [Recovered/Resolved]

NARRATIVE: CASE EVENT DATE: 20200510
